FAERS Safety Report 7069912-7 (Version None)
Quarter: 2010Q4

REPORT INFORMATION
  Report Type: 
  Country: None (occurrence: None)
  Receive Date: 20101028
  Receipt Date: 20100629
  Transmission Date: 20110411
  Serious: No
  Sender: FDA-Public Use
  Company Number: US-WYE-H16230910

PATIENT
  Age: 93 Year
  Sex: Female

DRUGS (2)
  1. ADVIL [Suspect]
     Indication: ANALGESIC THERAPY
     Route: 048
     Dates: start: 20100701, end: 20100701
  2. DIGOXIN [Concomitant]

REACTIONS (1)
  - CHEST DISCOMFORT [None]
